FAERS Safety Report 18636429 (Version 1)
Quarter: 2020Q4

REPORT INFORMATION
  Report Type: Spontaneous
  Country: US (occurrence: US)
  Receive Date: 20201218
  Receipt Date: 20201218
  Transmission Date: 20210114
  Serious: No
  Sender: FDA-Public Use
  Company Number: US-LUPIN PHARMACEUTICALS INC.-2020-05931

PATIENT
  Age: 63 Year
  Sex: Male

DRUGS (7)
  1. OXYCODONE [Suspect]
     Active Substance: OXYCODONE
     Indication: HEADACHE
     Dosage: UNK
     Route: 065
  2. ASPIRINE [Suspect]
     Active Substance: ASPIRIN
     Indication: HEADACHE
     Dosage: UNK
     Route: 016
  3. HYDROCODONE [Suspect]
     Active Substance: HYDROCODONE
     Indication: HEADACHE
     Dosage: UNK
     Route: 065
  4. A.P.C. [ACETYLSALICYLIC ACID;CAFFEINE;PARACETAMOL] [Suspect]
     Active Substance: ACETAMINOPHEN\ASPIRIN\CAFFEINE
     Indication: HEADACHE
     Dosage: UNK
     Route: 065
  5. TOPIRAMATE. [Concomitant]
     Active Substance: TOPIRAMATE
     Indication: ESSENTIAL TREMOR
     Dosage: UNK
     Route: 065
  6. PROPRANOLOL [Concomitant]
     Active Substance: PROPRANOLOL HYDROCHLORIDE
     Indication: ESSENTIAL TREMOR
     Dosage: UNK
     Route: 065
  7. IBUPROFEN. [Suspect]
     Active Substance: IBUPROFEN
     Indication: HEADACHE
     Dosage: UNK
     Route: 065

REACTIONS (1)
  - Drug ineffective [Unknown]
